FAERS Safety Report 6297856-7 (Version None)
Quarter: 2009Q3

REPORT INFORMATION
  Report Type: 
  Country: None (occurrence: None)
  Receive Date: 20090804
  Receipt Date: 20090804
  Transmission Date: 20100115
  Serious: Yes (Hospitalization)
  Sender: FDA-Public Use
  Company Number: None

PATIENT
  Sex: Female
  Weight: 69.2 kg

DRUGS (2)
  1. LITHIUM CARBONATE [Suspect]
     Dosage: 450MG, QHS, PO
     Route: 048
  2. LISINOPRIL AND HYDROCHLOROTHIAZIDE [Suspect]
     Dosage: 20MG / 25 MG, DAILY, PO
     Route: 048

REACTIONS (3)
  - HYPOKALAEMIA [None]
  - NAUSEA [None]
  - VOMITING [None]
